FAERS Safety Report 5487106-3 (Version None)
Quarter: 2007Q4

REPORT INFORMATION
  Report Type: 
  Country: None (occurrence: None)
  Receive Date: 20071016
  Receipt Date: 20071007
  Transmission Date: 20080405
  Serious: Yes (Other)
  Sender: FDA-Public Use
  Company Number: MX-ROCHE-523877

PATIENT
  Age: 32 Year
  Sex: Female
  Weight: 75 kg

DRUGS (3)
  1. XENICAL [Suspect]
     Indication: OVERWEIGHT
     Dosage: TAKEN DAILY.
     Route: 048
     Dates: start: 20071002, end: 20071003
  2. VALPROIC ACID [Concomitant]
     Dosage: DRUG NAME REPORTED AS AC.VALPROICO.
     Route: 048
     Dates: start: 19970101
  3. CARBAMACEPINA [Concomitant]
     Dosage: DRUG NAME: CABAMACEPINA
     Route: 048
     Dates: start: 19970101

REACTIONS (1)
  - CONVULSION [None]
